APPROVED DRUG PRODUCT: ALUPENT
Active Ingredient: METAPROTERENOL SULFATE
Strength: 0.6%
Dosage Form/Route: SOLUTION;INHALATION
Application: N018761 | Product #001
Applicant: BOEHRINGER INGELHEIM PHARMACEUTICALS INC
Approved: Jun 30, 1983 | RLD: No | RS: No | Type: DISCN